FAERS Safety Report 17912434 (Version 1)
Quarter: 2020Q2

REPORT INFORMATION
  Report Type: Spontaneous
  Country: US (occurrence: US)
  Receive Date: 20200618
  Receipt Date: 20200618
  Transmission Date: 20200714
  Serious: Yes (Other)
  Sender: FDA-Public Use
  Company Number: US-PFIZER INC-2020236749

PATIENT
  Sex: Male

DRUGS (2)
  1. LIPITOR [Suspect]
     Active Substance: ATORVASTATIN CALCIUM
     Dosage: 4 0 LILA FOR SEVERAL MONTHS
  2. LIPITOR [Suspect]
     Active Substance: ATORVASTATIN CALCIUM
     Dosage: 80 MG FOR 5-6 MONTH

REACTIONS (3)
  - Pain [Not Recovered/Not Resolved]
  - Cerebrovascular accident [Unknown]
  - Muscular weakness [Unknown]
